FAERS Safety Report 15861402 (Version 1)
Quarter: 2019Q1

REPORT INFORMATION
  Report Type: Spontaneous
  Country: US (occurrence: US)
  Receive Date: 20190124
  Receipt Date: 20190124
  Transmission Date: 20190417
  Serious: No
  Sender: FDA-Public Use
  Company Number: US-APOTEX-2019AP005227

PATIENT
  Sex: Male

DRUGS (1)
  1. MODAFINIL TABLETS USP [Suspect]
     Active Substance: MODAFINIL
     Indication: PRODUCT USED FOR UNKNOWN INDICATION
     Dosage: 1 DF, Q.M.T.
     Route: 065
     Dates: start: 20181226

REACTIONS (2)
  - Product substitution issue [Unknown]
  - Therapeutic response delayed [Unknown]
